FAERS Safety Report 11137607 (Version 5)
Quarter: 2015Q4

REPORT INFORMATION
  Report Type: Spontaneous
  Country: US (occurrence: US)
  Receive Date: 20150526
  Receipt Date: 20151231
  Transmission Date: 20160304
  Serious: Yes (Hospitalization, Other)
  Sender: FDA-Public Use
  Company Number: US-BAYER-2015-245270

PATIENT
  Age: 34 Year
  Sex: Female
  Weight: 97.51 kg

DRUGS (4)
  1. MISOPROSTOL. [Concomitant]
     Active Substance: MISOPROSTOL
     Dosage: 200 MG TWICE A DAY WITH MEALS
     Route: 048
     Dates: start: 20140320
  2. MIRENA [Suspect]
     Active Substance: LEVONORGESTREL
     Indication: CONTRACEPTION
     Dosage: 20 MCG/24HR, CONT
     Route: 015
     Dates: start: 20100827, end: 20140710
  3. PRENATAL VITAMINS [VIT C,B5,B12,D2,B3,B6,RETINOL PALMIT,B2,B1 MONO [Concomitant]
  4. DICLOFENAC [Concomitant]
     Active Substance: DICLOFENAC
     Dosage: 75 MG TWICE A DAY WITH MEALS
     Route: 048
     Dates: start: 20140320

REACTIONS (11)
  - Device difficult to use [None]
  - Injury [Recovered/Resolved]
  - Drug ineffective [None]
  - Scar [None]
  - Pregnancy with contraceptive device [None]
  - Pain [None]
  - Uterine perforation [Recovered/Resolved]
  - Back pain [Recovered/Resolved]
  - Emotional distress [None]
  - Anxiety [None]
  - Complication of device removal [None]

NARRATIVE: CASE EVENT DATE: 201103
